FAERS Safety Report 4560969-1 (Version None)
Quarter: 2005Q1

REPORT INFORMATION
  Report Type: 
  Country: None (occurrence: None)
  Receive Date: 20050126
  Receipt Date: 20040413
  Transmission Date: 20050727
  Serious: No
  Sender: FDA-Public Use
  Company Number: US-BRISTOL-MYERS SQUIBB COMPANY-12559217

PATIENT
  Age: 58 Year
  Sex: Female
  Weight: 63 kg

DRUGS (5)
  1. GLUCOPHAGE [Suspect]
     Indication: DIABETES MELLITUS
     Dosage: DURATION OF THERAPY:  ^SINCE THE MEDICATION HAS BEEN OUT ON THE MARKET^
     Route: 048
  2. DIABETA [Concomitant]
  3. PREMARIN [Concomitant]
  4. VASOTEC [Concomitant]
  5. LIPITOR [Concomitant]

REACTIONS (1)
  - BLOOD LACTIC ACID INCREASED [None]
